FAERS Safety Report 12237413 (Version 5)
Quarter: 2016Q3

REPORT INFORMATION
  Report Type: Spontaneous
  Country: JP (occurrence: JP)
  Receive Date: 20160405
  Receipt Date: 20160701
  Transmission Date: 20161109
  Serious: Yes (Other)
  Sender: FDA-Public Use
  Company Number: JP-BRISTOL-MYERS SQUIBB COMPANY-BMS-2016-020259

PATIENT
  Age: 75 Year
  Sex: Female
  Weight: 55 kg

DRUGS (8)
  1. SPIRONOLACTONE. [Concomitant]
     Active Substance: SPIRONOLACTONE
     Indication: PRODUCT USED FOR UNKNOWN INDICATION
     Dosage: 25 MG, QD
     Route: 048
     Dates: start: 20160208
  2. ELIQUIS [Suspect]
     Active Substance: APIXABAN
     Indication: THROMBOSIS PROPHYLAXIS
     Dosage: 2.5 MG, BID
     Route: 048
     Dates: start: 20150927, end: 20151027
  3. ELIQUIS [Interacting]
     Active Substance: APIXABAN
     Dosage: 2.5 MG, BID
     Route: 048
     Dates: start: 20151028, end: 20160116
  4. FUROSEMIDE. [Concomitant]
     Active Substance: FUROSEMIDE
     Indication: CARDIAC FAILURE
     Dosage: 0.5 G, QD
     Route: 048
     Dates: start: 20160205
  5. ELIQUIS [Interacting]
     Active Substance: APIXABAN
     Dosage: 2.5 MG, BID
     Route: 048
     Dates: start: 20160127
  6. ALEVIATIN                          /00017401/ [Interacting]
     Active Substance: PHENYTOIN SODIUM
     Dosage: 100 MG, BID
     Route: 048
     Dates: start: 20160114, end: 20160305
  7. LANSOPRAZOLE. [Concomitant]
     Active Substance: LANSOPRAZOLE
     Indication: GASTRIC ULCER
     Dosage: 15 MG, QD
     Route: 048
     Dates: start: 20160129, end: 20160304
  8. ALEVIATIN                          /00017401/ [Interacting]
     Active Substance: PHENYTOIN SODIUM
     Indication: SEIZURE
     Dosage: 100 MG, BID
     Route: 048
     Dates: start: 20130903, end: 20141209

REACTIONS (3)
  - Labelled drug-drug interaction medication error [Unknown]
  - Off label use [Unknown]
  - Drug level decreased [Not Recovered/Not Resolved]

NARRATIVE: CASE EVENT DATE: 20160229
